FAERS Safety Report 4434489-9 (Version None)
Quarter: 2004Q3

REPORT INFORMATION
  Report Type: 
  Country: None (occurrence: None)
  Receive Date: 20040726
  Receipt Date: 20040312
  Transmission Date: 20050211
  Serious: No
  Sender: FDA-Public Use
  Company Number: USA040361978

PATIENT
  Sex: Female

DRUGS (3)
  1. FORTEO [Suspect]
     Indication: OSTEOPOROSIS
     Dates: start: 20040224
  2. ENBREL [Concomitant]
  3. CALCIUM [Concomitant]

REACTIONS (2)
  - ASTHENIA [None]
  - MUSCULAR WEAKNESS [None]
